FAERS Safety Report 11363052 (Version 2)
Quarter: 2018Q1

REPORT INFORMATION
  Report Type: Report from Study
  Country: DE (occurrence: DE)
  Receive Date: 20150810
  Receipt Date: 20180119
  Transmission Date: 20180508
  Serious: Yes (Hospitalization)
  Sender: FDA-Public Use
  Company Number: DE-FRI-1000078855

PATIENT
  Age: 19 Year
  Sex: Female

DRUGS (22)
  1. SOLIAN [Interacting]
     Active Substance: AMISULPRIDE
     Dosage: 400 MG, QD
     Route: 048
     Dates: start: 20110111, end: 20110117
  2. QUETIAPIN AL [Concomitant]
     Indication: PRODUCT USED FOR UNKNOWN INDICATION
     Dosage: 50 MILLIGRAM
     Route: 065
     Dates: start: 20110125
  3. QUETIAPIN AL [Concomitant]
     Dosage: 100 MILLIGRAM
     Route: 065
     Dates: start: 20110126
  4. ABILIFY [Interacting]
     Active Substance: ARIPIPRAZOLE
     Dosage: 10 MG, UNK
     Route: 048
     Dates: start: 20110128, end: 20110204
  5. ABILIFY [Interacting]
     Active Substance: ARIPIPRAZOLE
     Dosage: 5 MG, UNK
     Route: 048
     Dates: start: 20110112
  6. LORAZEPAM. [Concomitant]
     Active Substance: LORAZEPAM
     Dosage: 1.5 MILLIGRAM
     Route: 065
     Dates: start: 20101229
  7. CITALOPRAM HYDROBROMIDE UNK [Interacting]
     Active Substance: CITALOPRAM HYDROBROMIDE
     Dosage: 20 MG, QD
     Route: 048
     Dates: start: 20101229, end: 20110109
  8. CITALOPRAM HYDROBROMIDE UNK [Suspect]
     Active Substance: CITALOPRAM HYDROBROMIDE
     Indication: MAJOR DEPRESSION
     Dosage: 40 MG, QD
     Route: 048
     Dates: start: 20110110, end: 20110205
  9. HALDOL [Interacting]
     Active Substance: HALOPERIDOL
     Indication: PRODUCT USED FOR UNKNOWN INDICATION
     Dosage: 6 MG, QD
     Route: 048
     Dates: start: 20101229, end: 20110104
  10. CITALOPRAM HYDROBROMIDE UNK [Interacting]
     Active Substance: CITALOPRAM HYDROBROMIDE
     Dosage: 10 MG, QD
     Route: 048
     Dates: start: 20101226
  11. ABILIFY [Interacting]
     Active Substance: ARIPIPRAZOLE
     Dosage: 10 MG, UNK
     Route: 048
     Dates: start: 20110115
  12. LORAZEPAM. [Concomitant]
     Active Substance: LORAZEPAM
     Dosage: 0.5 MILLIGRAM
     Route: 065
     Dates: start: 20110118, end: 20110121
  13. HALDOL [Interacting]
     Active Substance: HALOPERIDOL
     Dosage: 6 MG, QD
     Route: 048
     Dates: start: 20101226
  14. SOLIAN [Interacting]
     Active Substance: AMISULPRIDE
     Dosage: 300 MG, QD
     Route: 048
     Dates: start: 20110118
  15. BIPERIDEN [Concomitant]
     Active Substance: BIPERIDEN
     Indication: PRODUCT USED FOR UNKNOWN INDICATION
     Dosage: 4 MG, QD
     Route: 048
     Dates: start: 20110104, end: 20110131
  16. SOLIAN [Interacting]
     Active Substance: AMISULPRIDE
     Dosage: 200 MG, QD
     Route: 048
     Dates: start: 20110119, end: 20110121
  17. SOLIAN [Interacting]
     Active Substance: AMISULPRIDE
     Dosage: 100 MG, QD
     Route: 048
     Dates: start: 20110104, end: 20110110
  18. LORAZEPAM. [Concomitant]
     Active Substance: LORAZEPAM
     Indication: PRODUCT USED FOR UNKNOWN INDICATION
     Dosage: 2 MILLIGRAM
     Route: 065
     Dates: start: 20101226
  19. LORAZEPAM. [Concomitant]
     Active Substance: LORAZEPAM
     Dosage: 1 MILLIGRAM
     Route: 065
     Dates: start: 20110104, end: 20110117
  20. SOLIAN [Interacting]
     Active Substance: AMISULPRIDE
     Indication: PRODUCT USED FOR UNKNOWN INDICATION
     Dosage: 100 MG, QD
     Route: 048
     Dates: start: 20110122, end: 20110125
  21. ABILIFY [Interacting]
     Active Substance: ARIPIPRAZOLE
     Indication: PRODUCT USED FOR UNKNOWN INDICATION
     Dosage: 5 MG, UNK
     Route: 048
     Dates: start: 20110205
  22. ABILIFY [Interacting]
     Active Substance: ARIPIPRAZOLE
     Dosage: 15 MG, UNK
     Route: 048
     Dates: start: 20110118, end: 20110127

REACTIONS (3)
  - Extrapyramidal disorder [Unknown]
  - Drug interaction [Unknown]
  - Tremor [Recovering/Resolving]

NARRATIVE: CASE EVENT DATE: 20110104
